FAERS Safety Report 6142049-7 (Version None)
Quarter: 2009Q2

REPORT INFORMATION
  Report Type: 
  Country: None (occurrence: None)
  Receive Date: 20090402
  Receipt Date: 20090320
  Transmission Date: 20091009
  Serious: Yes (Hospitalization)
  Sender: FDA-Public Use
  Company Number: US-ELI_LILLY_AND_COMPANY-US200903005623

PATIENT
  Age: 50 Year
  Sex: Male

DRUGS (4)
  1. CYMBALTA [Suspect]
     Dosage: 60 MG, DAILY (1/D)
  2. OXYCONTIN [Concomitant]
  3. METHADONE HYDROCHLORIDE [Concomitant]
     Dosage: 50 MG, DAILY (1/D)
  4. CYCLOBENZAPRINE [Concomitant]

REACTIONS (5)
  - ANXIETY [None]
  - ARTHROPOD BITE [None]
  - DEPRESSION [None]
  - DRUG INEFFECTIVE [None]
  - DYSARTHRIA [None]
